FAERS Safety Report 7594968-2 (Version None)
Quarter: 2011Q3

REPORT INFORMATION
  Report Type: 
  Country: None (occurrence: None)
  Receive Date: 20110707
  Receipt Date: 20110628
  Transmission Date: 20111222
  Serious: Yes (Other)
  Sender: FDA-Public Use
  Company Number: CA-SANOFI-AVENTIS-2011SA034639

PATIENT
  Sex: Female

DRUGS (1)
  1. FERRLECIT [Suspect]
     Route: 065

REACTIONS (4)
  - FAECAL INCONTINENCE [None]
  - HYPOTENSION [None]
  - SYNCOPE [None]
  - PRODUCT QUALITY ISSUE [None]
